FAERS Safety Report 15260515 (Version 1)
Quarter: 2018Q3

REPORT INFORMATION
  Report Type: Spontaneous
  Country: CA (occurrence: CA)
  Receive Date: 20180809
  Receipt Date: 20180809
  Transmission Date: 20181010
  Serious: Yes (Hospitalization, Other)
  Sender: FDA-Public Use
  Company Number: CA-MYLANLABS-2018M1059641

PATIENT
  Sex: Male

DRUGS (1)
  1. MYLAN?NITRO PATCH 0.4 [Suspect]
     Active Substance: NITROGLYCERIN
     Indication: ANGINA PECTORIS
     Dosage: UNK
     Route: 062
     Dates: start: 201709

REACTIONS (2)
  - Hospitalisation [Recovered/Resolved]
  - Urticaria [Unknown]
